FAERS Safety Report 4580856-2 (Version None)
Quarter: 2005Q1

REPORT INFORMATION
  Report Type: 
  Country: None (occurrence: None)
  Receive Date: 20050214
  Receipt Date: 20040615
  Transmission Date: 20050727
  Serious: No
  Sender: FDA-Public Use
  Company Number: US-GLAXOSMITHKLINE-A0514697A

PATIENT
  Sex: Female

DRUGS (5)
  1. LAMICTAL [Suspect]
     Indication: DEPRESSION
     Dosage: 100MG PER DAY
     Route: 048
  2. ATIVAN [Concomitant]
  3. EFFEXOR [Concomitant]
  4. SEROQUEL [Concomitant]
  5. DETROL [Concomitant]

REACTIONS (5)
  - HEADACHE [None]
  - IRRITABLE BOWEL SYNDROME [None]
  - POLLAKIURIA [None]
  - RESTLESS LEGS SYNDROME [None]
  - RHINITIS [None]
